FAERS Safety Report 6133819-X (Version None)
Quarter: 2009Q1

REPORT INFORMATION
  Report Type: 
  Country: None (occurrence: None)
  Receive Date: 20090324
  Receipt Date: 20090313
  Transmission Date: 20090719
  Serious: Yes (Other)
  Sender: FDA-Public Use
  Company Number: DE-GDP-09405618

PATIENT
  Sex: Female

DRUGS (1)
  1. METVIX (METHYL AMINOLEVULINATE HYDROCHLORIDE) 16% [Suspect]
     Indication: ACTINIC KERATOSIS
     Dosage: (TOPICAL)
     Route: 061

REACTIONS (1)
  - CEREBROVASCULAR ACCIDENT [None]
